FAERS Safety Report 7390028-4 (Version None)
Quarter: 2011Q2

REPORT INFORMATION
  Report Type: 
  Country: None (occurrence: None)
  Receive Date: 20110401
  Receipt Date: 20110324
  Transmission Date: 20111010
  Serious: Yes (Hospitalization)
  Sender: FDA-Public Use
  Company Number: SE-ASTRAZENECA-2011SE15268

PATIENT
  Age: 48 Year
  Sex: Female

DRUGS (2)
  1. ZOMIG [Suspect]
     Indication: HEMICEPHALALGIA
     Route: 048
     Dates: start: 20110309, end: 20110309
  2. DEPO-PROVERA [Concomitant]

REACTIONS (2)
  - ANGINA PECTORIS [None]
  - TORSADE DE POINTES [None]
